FAERS Safety Report 9693822 (Version 1)
Quarter: 2013Q4

REPORT INFORMATION
  Report Type: Spontaneous
  Country: US (occurrence: US)
  Receive Date: 20131118
  Receipt Date: 20131118
  Transmission Date: 20140711
  Serious: Yes (Other)
  Sender: FDA-Public Use
  Company Number: PHEH2013US023905

PATIENT
  Sex: Female

DRUGS (6)
  1. DIOVAN [Suspect]
     Dosage: UNK UKN, UNK
  2. METOPROLOL [Concomitant]
     Dosage: 1 DF, (100 MG) PER DAY
  3. CLONIDINE HYDROCHLORIDE [Concomitant]
     Dosage: 0.1 MG, UNK
  4. SIMVASTATIN [Concomitant]
     Dosage: 1 DF, (20 MG) PER DAY
  5. ASPIRIN [Concomitant]
     Dosage: UNK UKN, UNK
  6. EQUATE (ACETYLSALICYLIC ACID) [Concomitant]
     Dosage: UNK UKN, UNK

REACTIONS (1)
  - Renal injury [Unknown]
